FAERS Safety Report 7125723-5 (Version None)
Quarter: 2010Q4

REPORT INFORMATION
  Report Type: 
  Country: None (occurrence: None)
  Receive Date: 20101129
  Receipt Date: 20101118
  Transmission Date: 20110411
  Serious: Yes (Other)
  Sender: FDA-Public Use
  Company Number: B0671489A

PATIENT
  Age: 3 Year
  Sex: Female

DRUGS (3)
  1. ZOFRAN [Suspect]
     Route: 040
     Dates: start: 20100823, end: 20100823
  2. REMIFENTANIL [Concomitant]
     Dosage: .2MCK UNKNOWN
     Route: 042
     Dates: start: 20100823, end: 20100823
  3. ISOFLURANE [Concomitant]
     Route: 055
     Dates: start: 20100823, end: 20100823

REACTIONS (2)
  - HYPERSENSITIVITY [None]
  - HYPOTENSION [None]
